FAERS Safety Report 8119415-3 (Version None)
Quarter: 2012Q1

REPORT INFORMATION
  Report Type: 
  Country: None (occurrence: None)
  Receive Date: 20120207
  Receipt Date: 20120127
  Transmission Date: 20120608
  Serious: Yes (Hospitalization)
  Sender: FDA-Public Use
  Company Number: CA-JNJFOC-20120113649

PATIENT
  Sex: Male
  Weight: 3.63 kg

DRUGS (3)
  1. CONCENTRATED TYLENOL INFANT DROPS [Suspect]
     Indication: PYREXIA
     Route: 048
     Dates: start: 20031105
  2. ANTIBIOTIC [Concomitant]
     Route: 065
  3. CONCENTRATED TYLENOL INFANT DROPS [Suspect]
     Route: 048

REACTIONS (1)
  - AUTISM [None]
